FAERS Safety Report 21741006 (Version 1)
Quarter: 2022Q4

REPORT INFORMATION
  Report Type: Spontaneous
  Country: US (occurrence: None)
  Receive Date: 20221215
  Receipt Date: 20221215
  Transmission Date: 20230113
  Serious: No
  Sender: FDA-Public Use
  Company Number: None

PATIENT
  Age: 75 Year
  Sex: Female

DRUGS (1)
  1. STELARA [Suspect]
     Active Substance: USTEKINUMAB
     Indication: Psoriatic arthropathy
     Dosage: FREQUENCY : AS DIRECTED;?#1 INJECT 45MG SUBCUTANEOUSLY AT WEEK O AND WEEK 4 AS?DIRECTED.?
     Route: 058
     Dates: start: 202107

REACTIONS (1)
  - Urinary tract infection [None]
